FAERS Safety Report 24681623 (Version 1)
Quarter: 2024Q4

REPORT INFORMATION
  Report Type: Spontaneous
  Country: US (occurrence: US)
  Receive Date: 20241130
  Receipt Date: 20241130
  Transmission Date: 20250115
  Serious: No
  Sender: GLAXOSMITHKLINE
  Company Number: US-GSK-US2024145123

PATIENT
  Age: 74 Year
  Sex: Female

DRUGS (1)
  1. NUCALA [Suspect]
     Active Substance: MEPOLIZUMAB
     Indication: Product used for unknown indication
     Dosage: UNK
     Dates: start: 202306

REACTIONS (6)
  - Ear infection bacterial [Not Recovered/Not Resolved]
  - Ear pain [Not Recovered/Not Resolved]
  - Rhinorrhoea [Not Recovered/Not Resolved]
  - Malaise [Unknown]
  - Viral infection [Unknown]
  - Sinusitis [Unknown]

NARRATIVE: CASE EVENT DATE: 20241120
